FAERS Safety Report 4906498-4 (Version None)
Quarter: 2006Q1

REPORT INFORMATION
  Report Type: 
  Country: None (occurrence: None)
  Receive Date: 20060209
  Receipt Date: 20050621
  Transmission Date: 20060701
  Serious: Yes (Other)
  Sender: FDA-Public Use
  Company Number: US-MERCK-0506USA03189

PATIENT
  Age: 75 Year
  Sex: Female
  Weight: 78 kg

DRUGS (6)
  1. VIOXX [Suspect]
     Route: 048
  2. FOSAMAX [Concomitant]
     Route: 065
  3. AMITRIPTYLINE HYDROCHLORIDE [Suspect]
     Route: 065
  4. NEXIUM [Concomitant]
     Route: 065
  5. LIPITOR [Concomitant]
     Route: 065
  6. XALATAN [Concomitant]
     Indication: GLAUCOMA
     Route: 065

REACTIONS (7)
  - AORTIC ARTERIOSCLEROSIS [None]
  - ASTHENIA [None]
  - CLUMSINESS [None]
  - ISCHAEMIC STROKE [None]
  - RASH [None]
  - SINUSITIS [None]
  - SYNCOPE [None]
